FAERS Safety Report 9825651 (Version 6)
Quarter: 2015Q2

REPORT INFORMATION
  Report Type: Report from Study
  Country: US (occurrence: US)
  Receive Date: 20140117
  Receipt Date: 20150605
  Transmission Date: 20150821
  Serious: Yes (Hospitalization)
  Sender: FDA-Public Use
  Company Number: US-SA-2014SA002538

PATIENT
  Age: 46 Year
  Sex: Female

DRUGS (3)
  1. AUBAGIO [Suspect]
     Active Substance: TERIFLUNOMIDE
     Indication: MULTIPLE SCLEROSIS
     Route: 048
     Dates: start: 20131201, end: 201505
  2. AUBAGIO [Suspect]
     Active Substance: TERIFLUNOMIDE
     Indication: MULTIPLE SCLEROSIS
     Route: 048
     Dates: start: 20130112
  3. AUBAGIO [Suspect]
     Active Substance: TERIFLUNOMIDE
     Indication: MULTIPLE SCLEROSIS
     Route: 048
     Dates: start: 20140112

REACTIONS (9)
  - Asthenia [Unknown]
  - Menorrhagia [Recovering/Resolving]
  - Nuclear magnetic resonance imaging abnormal [Unknown]
  - Musculoskeletal stiffness [Unknown]
  - Irritability [Unknown]
  - Unevaluable event [Unknown]
  - Stress [Unknown]
  - Fatigue [Unknown]
  - Plastic surgery [Unknown]

NARRATIVE: CASE EVENT DATE: 20140206
